FAERS Safety Report 5221151-8 (Version None)
Quarter: 2007Q1

REPORT INFORMATION
  Report Type: 
  Country: None (occurrence: None)
  Receive Date: 20070126
  Receipt Date: 20070119
  Transmission Date: 20070707
  Serious: Yes (Death, Hospitalization)
  Sender: FDA-Public Use
  Company Number: BR-BRISTOL-MYERS SQUIBB COMPANY-13629159

PATIENT
  Age: 65 Year
  Sex: Female

DRUGS (10)
  1. ABATACEPT [Suspect]
     Indication: RHEUMATOID ARTHRITIS
     Route: 042
     Dates: start: 20040514, end: 20061218
  2. METHOTREXATE [Concomitant]
     Dates: start: 20050518, end: 20061230
  3. PREDNISONE [Concomitant]
     Dates: start: 20060814, end: 20061230
  4. MELOXICAM [Concomitant]
     Dates: start: 20060126, end: 20061230
  5. LISINOPRIL [Concomitant]
     Indication: HYPERTENSION
     Dates: start: 20010101
  6. FOLIC ACID [Concomitant]
     Dates: start: 20030520, end: 20061230
  7. GLUCOVANCE [Concomitant]
     Dates: start: 20030101, end: 20061230
  8. OS-CAL + D [Concomitant]
     Dates: start: 20060814, end: 20061230
  9. OMEPRAZOLE [Concomitant]
     Dates: start: 20030601, end: 20061230
  10. LEVOTHYROXINE SODIUM [Concomitant]
     Dates: start: 20040510, end: 20061230

REACTIONS (4)
  - ATRIAL FIBRILLATION [None]
  - CARDIAC FAILURE CONGESTIVE [None]
  - DIABETES MELLITUS [None]
  - URINARY TRACT INFECTION [None]
